FAERS Safety Report 23621416 (Version 2)
Quarter: 2024Q1

REPORT INFORMATION
  Report Type: Spontaneous
  Country: DZ (occurrence: None)
  Receive Date: 20240312
  Receipt Date: 20240320
  Transmission Date: 20240409
  Serious: Yes (Other)
  Sender: FDA-Public Use
  Company Number: DZ-ROCHE-3524111

PATIENT
  Age: 55 Year
  Sex: Female

DRUGS (4)
  1. PERTUZUMAB [Suspect]
     Active Substance: PERTUZUMAB
     Indication: Breast cancer metastatic
     Dosage: 840 MG/21 DAYS LOADING DOSE THEN MAINTENANCE AT 420 MG/21 DAYS?LAST CYCLE ON 17/DEC/2023, DECISION T
     Route: 042
     Dates: start: 20231025
  2. TRASTUZUMAB [Concomitant]
     Active Substance: TRASTUZUMAB
     Dosage: 8 MG/KG LOADING DOSE THEN MAINTENANCE AT 6 MG/KG
  3. PACLITAXEL [Concomitant]
     Active Substance: PACLITAXEL
  4. ONDANSETRON [Concomitant]
     Active Substance: ONDANSETRON

REACTIONS (1)
  - Disease progression [Unknown]

NARRATIVE: CASE EVENT DATE: 20240106
